FAERS Safety Report 8183180-4 (Version None)
Quarter: 2012Q1

REPORT INFORMATION
  Report Type: 
  Country: None (occurrence: None)
  Receive Date: 20120127
  Receipt Date: 20111219
  Transmission Date: 20120608
  Serious: Yes (Other)
  Sender: FDA-Public Use
  Company Number: AMAG201100272

PATIENT
  Age: 85 Year
  Sex: Female

DRUGS (14)
  1. SEROQUEL [Concomitant]
  2. PRILOSEC [Concomitant]
  3. ACETAMINOPHEN [Concomitant]
  4. SYNTHROID [Concomitant]
  5. FERAHEME [Suspect]
     Indication: IRON DEFICIENCY ANAEMIA
     Dosage: 510 MG, SINGLE, INTRAVENOUS
     Route: 042
     Dates: start: 20111208, end: 20111208
  6. MIRALAX (MACROGOL) (EXCEPT [DPO]) [Concomitant]
  7. TOPROL-XL [Concomitant]
  8. DEPAKENE [Concomitant]
  9. FERROUS SULFATE TAB [Concomitant]
  10. FOLIC ACID [Concomitant]
  11. SODIUM BICARBONATE DALMAU (SODIUM BICARBONATE) [Concomitant]
  12. PROCRIT [Concomitant]
  13. SEVELAMER (SEVELAMER) [Concomitant]
  14. VITAMIN B12 [Concomitant]

REACTIONS (10)
  - DYSPNOEA [None]
  - AGITATION [None]
  - ERYTHEMA [None]
  - HYPERSENSITIVITY [None]
  - TACHYCARDIA [None]
  - DYSKINESIA [None]
  - INFUSION SITE EXTRAVASATION [None]
  - HYPERHIDROSIS [None]
  - RETCHING [None]
  - MUSCULOSKELETAL STIFFNESS [None]
